FAERS Safety Report 9927329 (Version 1)
Quarter: 2014Q1

REPORT INFORMATION
  Report Type: Spontaneous
  Country: NL (occurrence: NL)
  Receive Date: 20140226
  Receipt Date: 20140226
  Transmission Date: 20141002
  Serious: Yes (Hospitalization)
  Sender: FDA-Public Use
  Company Number: PHHY2014NL021288

PATIENT
  Sex: 0

DRUGS (1)
  1. EXJADE [Suspect]
     Indication: SERUM FERRITIN INCREASED
     Dosage: UNK UKN, UNK

REACTIONS (3)
  - Septic shock [Unknown]
  - Liver disorder [Unknown]
  - Haematochezia [Unknown]
